FAERS Safety Report 17913882 (Version 1)
Quarter: 2020Q2

REPORT INFORMATION
  Report Type: Spontaneous
  Country: AT (occurrence: AT)
  Receive Date: 20200618
  Receipt Date: 20200618
  Transmission Date: 20200714
  Serious: Yes (Other)
  Sender: FDA-Public Use
  Company Number: AT-ASTELLAS-2020US020442

PATIENT
  Sex: Male

DRUGS (1)
  1. XTANDI [Suspect]
     Active Substance: ENZALUTAMIDE
     Indication: HORMONE-REFRACTORY PROSTATE CANCER
     Route: 065
     Dates: start: 20200206

REACTIONS (6)
  - Blood pressure increased [Not Recovered/Not Resolved]
  - Alcohol abuse [Unknown]
  - Cerebrovascular accident [Unknown]
  - Fall [Unknown]
  - Forearm fracture [Unknown]
  - Dizziness [Unknown]

NARRATIVE: CASE EVENT DATE: 202003
